FAERS Safety Report 20261629 (Version 2)
Quarter: 2022Q1

REPORT INFORMATION
  Report Type: Report from Study
  Country: CA (occurrence: CA)
  Receive Date: 20211231
  Receipt Date: 20220117
  Transmission Date: 20220423
  Serious: Yes (Hospitalization, Other)
  Sender: FDA-Public Use
  Company Number: CA-JNJFOC-20211252734

PATIENT
  Age: 70 Year
  Sex: Female

DRUGS (10)
  1. MACITENTAN [Suspect]
     Active Substance: MACITENTAN
     Indication: Pulmonary hypertension
     Route: 048
     Dates: start: 20210724
  2. SELEXIPAG [Suspect]
     Active Substance: SELEXIPAG
     Indication: Pulmonary hypertension
     Route: 048
     Dates: start: 20211118
  3. TADALAFIL [Concomitant]
     Active Substance: TADALAFIL
     Dates: start: 20210724
  4. ASPIRIN [Concomitant]
     Active Substance: ASPIRIN
  5. SINGULAIR [Concomitant]
     Active Substance: MONTELUKAST SODIUM
  6. HYDROXYZINE [Concomitant]
     Active Substance: HYDROXYZINE HYDROCHLORIDE
  7. TRAZODONE [Concomitant]
     Active Substance: TRAZODONE HYDROCHLORIDE
     Dosage: AT BEDTIME
  8. TYLENOL [Concomitant]
     Active Substance: ACETAMINOPHEN
     Dosage: WHEN NEEDED
  9. OXYGEN [Concomitant]
     Active Substance: OXYGEN
     Dosage: 24/7
  10. IMODIUM [Concomitant]
     Active Substance: LOPERAMIDE HYDROCHLORIDE

REACTIONS (2)
  - Pneumonia [Recovering/Resolving]
  - Nausea [Unknown]

NARRATIVE: CASE EVENT DATE: 20211201
